FAERS Safety Report 4342072-9 (Version None)
Quarter: 2004Q2

REPORT INFORMATION
  Report Type: 
  Country: None (occurrence: None)
  Receive Date: 20040420
  Receipt Date: 20040330
  Transmission Date: 20050107
  Serious: Yes (Death, Other)
  Sender: FDA-Public Use
  Company Number: GR-MERCK-0403GRC00017

PATIENT
  Age: 85 Year
  Sex: Female

DRUGS (10)
  1. [THERAPY UNSPECIFIED] [Concomitant]
     Indication: PANCREATITIS ACUTE
     Route: 042
     Dates: start: 20040324
  2. [THERAPY UNSPECIFIED] [Concomitant]
     Indication: CHOLECYSTITIS ACUTE
     Route: 042
     Dates: start: 20040324
  3. CILASTATIN SODIUM AND IMIPENEM [Suspect]
     Indication: PANCREATITIS ACUTE
     Route: 042
     Dates: start: 20040222, end: 20040309
  4. CILASTATIN SODIUM AND IMIPENEM [Suspect]
     Route: 042
     Dates: start: 20040310, end: 20040310
  5. CILASTATIN SODIUM AND IMIPENEM [Suspect]
     Indication: CHOLECYSTITIS ACUTE
     Route: 042
     Dates: start: 20040222, end: 20040309
  6. CILASTATIN SODIUM AND IMIPENEM [Suspect]
     Route: 042
     Dates: start: 20040310, end: 20040310
  7. INVANZ [Suspect]
     Indication: PANCREATITIS ACUTE
     Route: 042
     Dates: start: 20040221, end: 20040221
  8. INVANZ [Suspect]
     Route: 042
     Dates: start: 20040319, end: 20040323
  9. INVANZ [Suspect]
     Indication: CHOLECYSTITIS ACUTE
     Route: 042
     Dates: start: 20040221, end: 20040221
  10. INVANZ [Suspect]
     Route: 042
     Dates: start: 20040319, end: 20040323

REACTIONS (4)
  - AGRANULOCYTOSIS [None]
  - DEATH [None]
  - HAEMATOCRIT DECREASED [None]
  - PLATELET COUNT DECREASED [None]
